FAERS Safety Report 4577319-7 (Version None)
Quarter: 2005Q1

REPORT INFORMATION
  Report Type: 
  Country: None (occurrence: None)
  Receive Date: 20050210
  Receipt Date: 20031103
  Transmission Date: 20050727
  Serious: Yes (Death)
  Sender: FDA-Public Use
  Company Number: US-GLAXOSMITHKLINE-A0439709A

PATIENT
  Age: 56 Year
  Sex: Female

DRUGS (1)
  1. AVANDIA [Suspect]
     Indication: DIABETES MELLITUS NON-INSULIN-DEPENDENT
     Route: 048

REACTIONS (25)
  - ACUTE RESPIRATORY FAILURE [None]
  - ANAEMIA [None]
  - ATHEROSCLEROSIS [None]
  - CARDIAC ARREST [None]
  - CATHETER RELATED COMPLICATION [None]
  - COMA [None]
  - CORONARY ARTERY DISEASE [None]
  - CORONARY ARTERY STENOSIS [None]
  - DIABETIC NEPHROPATHY [None]
  - DIALYSIS [None]
  - DIASTOLIC DYSFUNCTION [None]
  - FLUID OVERLOAD [None]
  - HAEMODYNAMIC INSTABILITY [None]
  - HEART INJURY [None]
  - HYPERTENSION [None]
  - HYPOTENSION [None]
  - LEG AMPUTATION [None]
  - MITRAL VALVE INCOMPETENCE [None]
  - MYOCARDIAL INFARCTION [None]
  - OSTEOARTHRITIS [None]
  - POST PROCEDURAL COMPLICATION [None]
  - PULMONARY OEDEMA [None]
  - RENAL FAILURE CHRONIC [None]
  - SEPSIS [None]
  - TRICUSPID VALVE INCOMPETENCE [None]
